FAERS Safety Report 24340912 (Version 1)
Quarter: 2024Q3

REPORT INFORMATION
  Report Type: Spontaneous
  Country: AR (occurrence: AR)
  Receive Date: 20240919
  Receipt Date: 20240919
  Transmission Date: 20241016
  Serious: Yes (Life-Threatening, Hospitalization, Other)
  Sender: NOVARTIS
  Company Number: AR-002147023-NVSC2022AR145736

PATIENT
  Age: 60 Year
  Sex: Female

DRUGS (3)
  1. PIQRAY [Suspect]
     Active Substance: ALPELISIB
     Indication: Hormone receptor positive HER2 negative breast cancer
     Dosage: 300 MG, QD
     Route: 065
     Dates: start: 20220503, end: 20220521
  2. FULVESTRANT [Suspect]
     Active Substance: FULVESTRANT
     Indication: Hormone receptor positive HER2 negative breast cancer
     Dosage: 500 MG (EVERY 28 DAYS)
     Route: 030
     Dates: start: 20220302, end: 20220521
  3. CLONAZEPAM [Concomitant]
     Active Substance: CLONAZEPAM
     Indication: Product used for unknown indication
     Dosage: 0.25 MG
     Route: 065

REACTIONS (3)
  - Near death experience [Unknown]
  - Mucosal inflammation [Recovered/Resolved]
  - Hepatic lesion [Unknown]

NARRATIVE: CASE EVENT DATE: 20220521
